FAERS Safety Report 7214174-0 (Version None)
Quarter: 2011Q1

REPORT INFORMATION
  Report Type: 
  Country: None (occurrence: None)
  Receive Date: 20110107
  Receipt Date: 20101228
  Transmission Date: 20110831
  Serious: Yes (Hospitalization)
  Sender: FDA-Public Use
  Company Number: JP-ASTELLAS-2010JP007667

PATIENT
  Age: 84 Year
  Sex: Male

DRUGS (4)
  1. POLLAKISU [Suspect]
     Dosage: 9 MG, UNKNOWN/D
     Route: 048
     Dates: end: 20101221
  2. VESICARE [Suspect]
     Indication: NEUROGENIC BLADDER
     Dosage: 10 MG, UNKNOWN/D
     Route: 048
     Dates: end: 20101221
  3. BLADDERON [Suspect]
     Dosage: 600 MG, UNKNOWN/D
     Route: 048
     Dates: end: 20101221
  4. TAMSULOSIN HCL [Concomitant]
     Dosage: 0.2 MG, UNKNOWN/D
     Route: 048

REACTIONS (2)
  - URINARY RETENTION [None]
  - ILEUS [None]
